FAERS Safety Report 8535446-3 (Version None)
Quarter: 2012Q3

REPORT INFORMATION
  Report Type: 
  Country: None (occurrence: None)
  Receive Date: 20120725
  Receipt Date: 20100819
  Transmission Date: 20120928
  Serious: Yes (Other)
  Sender: FDA-Public Use
  Company Number: US-BAYER-200917976NA

PATIENT
  Age: 41 Year
  Sex: Female
  Weight: 84.545 kg

DRUGS (50)
  1. MAGNEVIST [Suspect]
     Indication: NUCLEAR MAGNETIC RESONANCE IMAGING
     Route: 042
     Dates: start: 20050120, end: 20050120
  2. CENESTIN [Concomitant]
  3. ZYDONE [Concomitant]
  4. RENAGEL [Concomitant]
  5. DEPAKOTE [Concomitant]
  6. COUMADIN [Concomitant]
  7. METOCLOPRAMIDE [Concomitant]
  8. DIAMOX [Concomitant]
  9. BACLOFEN [Concomitant]
  10. CLONAZEPAM [Concomitant]
  11. PREDNISONE [Concomitant]
  12. OMNISCAN [Suspect]
     Indication: ANGIOGRAM
     Route: 042
     Dates: start: 20010322, end: 20010322
  13. OMNISCAN [Suspect]
  14. LIPITOR [Concomitant]
  15. EFFEXOR [Concomitant]
  16. LORTAB [Concomitant]
  17. NEUTRA-PHOS-K [Concomitant]
  18. SODIUM BICARBONATE [Concomitant]
  19. VERAPAMIL [Concomitant]
  20. ULTRAM [Concomitant]
  21. OMNISCAN [Suspect]
     Indication: NUCLEAR MAGNETIC RESONANCE IMAGING BRAIN
     Route: 042
     Dates: start: 20040813, end: 20040813
  22. METOPROLOL SUCCINATE [Concomitant]
  23. EPO [Concomitant]
  24. SYNTHROID [Concomitant]
  25. TRICOR [Concomitant]
  26. ROCALTROL [Concomitant]
  27. MAGNEVIST [Suspect]
     Indication: ANGIOGRAM
     Route: 042
     Dates: start: 20040914, end: 20040914
  28. OMNISCAN [Suspect]
     Route: 042
     Dates: start: 20051229, end: 20051229
  29. MULTIHANCE [Suspect]
  30. PROHANCE [Suspect]
  31. HYDROCORTISONE [Concomitant]
     Indication: PRURITUS
  32. NEPHROVITE [VIT C,VIT H,B5,B12,B9,B3,B6,B2,B1 HCL] [Concomitant]
  33. CIPROFLOXACIN HCL [Concomitant]
  34. TAGAMET [Concomitant]
  35. HYDROCORTISONE [Concomitant]
     Indication: RASH
  36. HYDROCORTISONE [Concomitant]
     Indication: URTICARIA
  37. RENVELA [Concomitant]
  38. ZYRTEC [Concomitant]
  39. VISTARIL [Concomitant]
  40. ROCEPHIN [Concomitant]
  41. PROGRAF [Concomitant]
  42. QUININE SULFATE [Concomitant]
  43. MEDROXYPROGESTERONE [Concomitant]
  44. CLONIDINE [Concomitant]
  45. AMIDRINE [Concomitant]
  46. NIFEDIPINE [Concomitant]
  47. BENADRYL [Concomitant]
  48. IRON SUPPLEMENT [Concomitant]
  49. VITAMINS NOS [Concomitant]
  50. CELLCEPT [Concomitant]

REACTIONS (35)
  - INFLAMMATION [None]
  - MOTOR DYSFUNCTION [None]
  - VEIN DISORDER [None]
  - LOWER EXTREMITY MASS [None]
  - PRURITUS GENERALISED [None]
  - SKIN PLAQUE [None]
  - RASH MACULAR [None]
  - SKIN HYPERTROPHY [None]
  - DRY SKIN [None]
  - BURNING SENSATION [None]
  - RASH PAPULAR [None]
  - ANXIETY [None]
  - OEDEMA PERIPHERAL [None]
  - HYPOAESTHESIA [None]
  - MUSCULAR WEAKNESS [None]
  - PAIN IN EXTREMITY [None]
  - MUSCULOSKELETAL DISCOMFORT [None]
  - MUSCLE TIGHTNESS [None]
  - SKIN TIGHTNESS [None]
  - EMOTIONAL DISTRESS [None]
  - GAIT DISTURBANCE [None]
  - NEPHROGENIC SYSTEMIC FIBROSIS [None]
  - PARAESTHESIA [None]
  - LIMB DISCOMFORT [None]
  - MUSCLE TWITCHING [None]
  - SKIN INDURATION [None]
  - ARTHRALGIA [None]
  - MUSCULOSKELETAL CHEST PAIN [None]
  - SYSTEMIC SCLEROSIS [None]
  - ANHEDONIA [None]
  - DYSSTASIA [None]
  - OEDEMA [None]
  - PAIN [None]
  - ABDOMINAL PAIN UPPER [None]
  - MUSCLE DISORDER [None]
